FAERS Safety Report 6234300-X (Version None)
Quarter: 2009Q2

REPORT INFORMATION
  Report Type: 
  Country: None (occurrence: None)
  Receive Date: 20090618
  Receipt Date: 20090610
  Transmission Date: 20091009
  Serious: Yes (Other)
  Sender: FDA-Public Use
  Company Number: US-JNJFOC-20090603890

PATIENT
  Age: 31 Year
  Sex: Female

DRUGS (3)
  1. TOPAMAX [Suspect]
     Indication: HEADACHE
     Route: 048
  2. TOPIRAMATE [Suspect]
     Indication: HEADACHE
     Route: 048
  3. LEXAPRO [Concomitant]
     Indication: ANXIETY

REACTIONS (4)
  - HALLUCINATION, AUDITORY [None]
  - HALLUCINATION, VISUAL [None]
  - THERAPEUTIC RESPONSE UNEXPECTED [None]
  - VISION BLURRED [None]
